FAERS Safety Report 9825274 (Version 1)
Quarter: 2013Q4

REPORT INFORMATION
  Report Type: Spontaneous
  Country: US (occurrence: None)
  Receive Date: 20131028
  Receipt Date: 20131028
  Transmission Date: 20140711
  Serious: Yes (Other)
  Sender: FDA-Public Use
  Company Number: 2013US002015

PATIENT
  Age: 45 Year
  Sex: Female
  Weight: 114 kg

DRUGS (5)
  1. HYDROCODONE (HYDROCODONE) [Concomitant]
  2. IRON (IRON) [Concomitant]
  3. VITAMIN B12 (CYANOCOBALAMIN) [Concomitant]
  4. SYNTHROID (LEVOTHYROXINE SODIUM) [Concomitant]
  5. ICLUSIG [Suspect]
     Indication: CHRONIC MYELOID LEUKAEMIA
     Route: 048
     Dates: start: 20130325

REACTIONS (1)
  - Constipation [None]
